FAERS Safety Report 24168467 (Version 1)
Quarter: 2024Q3

REPORT INFORMATION
  Report Type: Spontaneous
  Country: US (occurrence: US)
  Receive Date: 20240802
  Receipt Date: 20240802
  Transmission Date: 20241017
  Serious: Yes (Death, Hospitalization, Other)
  Sender: DR REDDYS
  Company Number: US-DRL-USA-LIT/USA/24/0011044

PATIENT
  Age: 37 Year
  Sex: Male

DRUGS (3)
  1. DAPTOMYCIN [Suspect]
     Active Substance: DAPTOMYCIN
     Indication: Staphylococcal bacteraemia
  2. CEFTAROLINE [Suspect]
     Active Substance: CEFTAROLINE
     Indication: Staphylococcal bacteraemia
  3. VANCOMYCIN [Suspect]
     Active Substance: VANCOMYCIN
     Indication: Staphylococcal bacteraemia

REACTIONS (12)
  - Multiple organ dysfunction syndrome [Fatal]
  - Hypotension [Fatal]
  - Hypoxia [Fatal]
  - Endocarditis [Fatal]
  - Septic embolus [Fatal]
  - Cerebral artery embolism [Fatal]
  - Thrombocytopenia [Fatal]
  - Pleural effusion [Fatal]
  - Splenic abscess [Fatal]
  - Cardiac failure [Fatal]
  - Sepsis [Fatal]
  - Empyema [Fatal]
